FAERS Safety Report 4544275-7 (Version None)
Quarter: 2005Q1

REPORT INFORMATION
  Report Type: 
  Country: None (occurrence: None)
  Receive Date: 20050104
  Receipt Date: 20041104
  Transmission Date: 20050727
  Serious: Yes (Life-Threatening, Other)
  Sender: FDA-Public Use
  Company Number: JP-ABBOTT-04P-087-0282320-00

PATIENT
  Sex: Male

DRUGS (16)
  1. SEVORANE LIQUID FOR INHALATION [Suspect]
     Indication: ANAESTHESIA
     Dosage: 2-5%
     Route: 055
     Dates: start: 19991105, end: 19991105
  2. LIDOCAINE HCL [Suspect]
     Indication: NERVE BLOCK
     Dosage: 1%
     Route: 050
     Dates: start: 19991105, end: 19991105
  3. LIDOCAINE W/ EPINEPHRINE [Suspect]
     Indication: LOCAL ANAESTHESIA
     Route: 050
     Dates: start: 19991105, end: 19991105
  4. THIAMYLAL SODIUM [Suspect]
     Indication: DRUG USE FOR UNKNOWN INDICATION
     Route: 042
     Dates: start: 19991105, end: 19991105
  5. VECURONIUM BROMIDE [Suspect]
     Indication: MUSCLE RELAXANT THERAPY
     Route: 042
     Dates: start: 19991105, end: 19991105
  6. DIAZEPAM [Concomitant]
     Indication: PREMEDICATION
     Route: 048
     Dates: start: 19991104, end: 19991104
  7. DIAZEPAM [Concomitant]
     Route: 048
     Dates: start: 19991105, end: 19991105
  8. FENTANYL CITRATE [Concomitant]
     Indication: ANALGESIC EFFECT
     Route: 042
     Dates: start: 19991105, end: 19991105
  9. MIDAZOLAM HCL [Concomitant]
     Indication: SEDATION
     Route: 042
     Dates: start: 19991105, end: 19991105
  10. BUPIVACAINE HCL [Concomitant]
     Indication: NERVE BLOCK
     Dosage: 0.5%
     Route: 050
     Dates: start: 19991105, end: 19991105
  11. ATROPINE SULFATE [Concomitant]
     Indication: PREMEDICATION
     Route: 042
     Dates: start: 19991105, end: 19991105
  12. NITROUS OXIDE [Concomitant]
     Indication: ANAESTHESIA
     Route: 055
     Dates: start: 19991105, end: 19991105
  13. CARBAZOCHROME SODIUM SULFONATE [Concomitant]
     Indication: HAEMORRHAGE
     Route: 042
     Dates: start: 19991105, end: 19991105
  14. TRANEXAMIC ACID [Concomitant]
     Indication: HAEMORRHAGE
     Route: 042
     Dates: start: 19991105, end: 19991105
  15. NITROPRUSSIDE SODIUM [Concomitant]
     Indication: HYPOTENSIVE ANAESTHESIA PROCEDURE
     Route: 042
     Dates: start: 19991105, end: 19991105
  16. NEOSTIGMINE [Concomitant]
     Indication: ANAESTHESIA REVERSAL
     Route: 042
     Dates: start: 19991105, end: 19991105

REACTIONS (4)
  - HYPERCAPNIA [None]
  - HYPERTHERMIA MALIGNANT [None]
  - HYPOXIA [None]
  - PULMONARY INFARCTION [None]
